FAERS Safety Report 8908599 (Version 1)
Quarter: 2012Q4

REPORT INFORMATION
  Report Type: 
  Country: US (occurrence: US)
  Receive Date: 20121114
  Receipt Date: 20121114
  Transmission Date: 20130627
  Serious: No
  Sender: FDA-Public Use
  Company Number: US-MYLANLABS-2012S1016962

PATIENT
  Age: 63 Year
  Sex: Male

DRUGS (3)
  1. MORPHINE SULFATE [Suspect]
     Indication: PAIN IN EXTREMITY
     Dosage: 30mg at 6AM, 15mg at 10PM
     Route: 048
     Dates: start: 20120806, end: 20120818
  2. MORPHINE SULFATE [Suspect]
     Indication: PAIN IN EXTREMITY
     Dosage: 30mg at 6AM, 15mg at 10PM
     Route: 048
     Dates: start: 20120806, end: 20120818
  3. NEURONTIN [Concomitant]
     Indication: PAIN IN EXTREMITY

REACTIONS (2)
  - Drug ineffective [Recovered/Resolved]
  - Pain in extremity [Recovered/Resolved]
